FAERS Safety Report 16917900 (Version 1)
Quarter: 2019Q4

REPORT INFORMATION
  Report Type: Spontaneous
  Country: RU (occurrence: RU)
  Receive Date: 20191015
  Receipt Date: 20191015
  Transmission Date: 20200122
  Serious: Yes (Other)
  Sender: FDA-Public Use
  Company Number: RU-BRISTOL-MYERS SQUIBB COMPANY-BMS-2019-096880

PATIENT
  Age: 71 Year
  Sex: Female
  Weight: 115 kg

DRUGS (1)
  1. OPDIVO [Suspect]
     Active Substance: NIVOLUMAB
     Indication: MALIGNANT MELANOMA
     Dosage: 240 MILLIGRAM AT TWICE IN EVERY WEEK
     Route: 042
     Dates: start: 201810

REACTIONS (4)
  - Metastases to bone [Unknown]
  - Intestinal metastasis [Unknown]
  - Metastases to peritoneum [Unknown]
  - Off label use [Unknown]
